FAERS Safety Report 17338349 (Version 1)
Quarter: 2020Q1

REPORT INFORMATION
  Report Type: Report from Study
  Country: IT (occurrence: IT)
  Receive Date: 20200129
  Receipt Date: 20200129
  Transmission Date: 20200409
  Serious: Yes (Other)
  Sender: FDA-Public Use
  Company Number: NVSC2019IT019072

PATIENT
  Age: 42 Year
  Sex: Male

DRUGS (2)
  1. REVOLADE [Suspect]
     Active Substance: ELTROMBOPAG
     Indication: PRODUCT USED FOR UNKNOWN INDICATION
     Dosage: 125 MG, QD (50 MG AND 75 MG DAILY)
     Route: 065
     Dates: start: 201802
  2. REVOLADE [Suspect]
     Active Substance: ELTROMBOPAG
     Dosage: 125 MG, QD (50 MG AND 75 MG DAILY)
     Route: 065
     Dates: start: 201903

REACTIONS (13)
  - Bone marrow disorder [Unknown]
  - Inflammation [Unknown]
  - Drug ineffective [Unknown]
  - Procedural pain [Unknown]
  - Pain [Unknown]
  - Hepatic pain [Unknown]
  - Malaise [Unknown]
  - Feeling abnormal [Unknown]
  - Bone pain [Unknown]
  - Transaminases abnormal [Unknown]
  - Swelling [Unknown]
  - Gastrointestinal disorder [Unknown]
  - Pelvic pain [Unknown]
